FAERS Safety Report 4815949-5 (Version None)
Quarter: 2005Q4

REPORT INFORMATION
  Report Type: 
  Country: None (occurrence: None)
  Receive Date: 20051031
  Receipt Date: 20051014
  Transmission Date: 20060501
  Serious: Yes (Other)
  Sender: FDA-Public Use
  Company Number: GB-ABBOTT-05P-167-0313716-00

PATIENT
  Age: 42 Year
  Sex: Female

DRUGS (1)
  1. PROSTAP SR INJECTION [Suspect]
     Indication: UTERINE LEIOMYOMA
     Route: 050
     Dates: start: 20031201

REACTIONS (4)
  - BLINDNESS [None]
  - HEADACHE [None]
  - INFLUENZA LIKE ILLNESS [None]
  - INTRACRANIAL PRESSURE INCREASED [None]
